FAERS Safety Report 8476189 (Version 2)
Quarter: 2013Q1

REPORT INFORMATION
  Report Type: Spontaneous
  Country: BR (occurrence: BR)
  Receive Date: 20120326
  Receipt Date: 20130327
  Transmission Date: 20140127
  Serious: Yes (Hospitalization)
  Sender: FDA-Public Use
  Company Number: BR-ROCHE-1050663

PATIENT
  Age: 22 Year
  Sex: Male

DRUGS (1)
  1. ROACUTAN [Suspect]
     Indication: ACNE
     Route: 065
     Dates: start: 201201

REACTIONS (5)
  - Stevens-Johnson syndrome [Recovered/Resolved]
  - Drug-induced liver injury [Recovered/Resolved]
  - Renal failure [Not Recovered/Not Resolved]
  - Glomerulonephritis [Recovered/Resolved]
  - Blood uric acid increased [Recovered/Resolved]
